FAERS Safety Report 22753084 (Version 5)
Quarter: 2024Q1

REPORT INFORMATION
  Report Type: Spontaneous
  Country: US (occurrence: US)
  Receive Date: 20230726
  Receipt Date: 20240212
  Transmission Date: 20240410
  Serious: No
  Sender: FDA-Public Use
  Company Number: US-BRISTOL-MYERS SQUIBB COMPANY-2023-105295

PATIENT
  Age: 71 Year
  Sex: Male
  Weight: 121.56 kg

DRUGS (2)
  1. REVLIMID [Suspect]
     Active Substance: LENALIDOMIDE
     Indication: Plasma cell myeloma
     Dosage: FREQUENCY: 14D ON 7D OFF
     Route: 048
  2. REVLIMID [Suspect]
     Active Substance: LENALIDOMIDE
     Route: 048

REACTIONS (8)
  - Muscle spasms [Unknown]
  - Off label use [Unknown]
  - Paraesthesia [Unknown]
  - Bronchitis [Recovering/Resolving]
  - Contusion [Unknown]
  - Neuralgia [Unknown]
  - Burning sensation [Unknown]
  - Pain in extremity [Unknown]

NARRATIVE: CASE EVENT DATE: 20230801
